FAERS Safety Report 10239826 (Version 3)
Quarter: 2019Q4

REPORT INFORMATION
  Report Type: Spontaneous
  Country: IT (occurrence: IT)
  Receive Date: 20140616
  Receipt Date: 20191230
  Transmission Date: 20200122
  Serious: Yes (Hospitalization, Other)
  Sender: FDA-Public Use
  Company Number: IT-MERCK-1406ITA007132

PATIENT
  Age: 80 Year
  Sex: Female

DRUGS (28)
  1. ATEM [Suspect]
     Active Substance: IPRATROPIUM BROMIDE
     Dosage: UNK, PRN
     Dates: start: 20140412, end: 20140516
  2. OMEPRAZOLE. [Concomitant]
     Active Substance: OMEPRAZOLE
     Dosage: 40 MG, UNK
     Route: 048
  3. FOLINA (FOLIC ACID) [Concomitant]
     Active Substance: FOLIC ACID
     Dosage: UNK
     Route: 048
  4. INVANZ [Suspect]
     Active Substance: ERTAPENEM SODIUM
     Indication: PNEUMONIA BACTERIAL
     Dosage: 1 G, QD
     Route: 042
     Dates: start: 20140429, end: 20140527
  5. CLEXANE (ENOXAPARIN SODIUM) [Suspect]
     Active Substance: ENOXAPARIN SODIUM
     Indication: THROMBOSIS PROPHYLAXIS
     Dosage: 4000 IU, QD
     Route: 058
     Dates: start: 20140417, end: 20140418
  6. KANRENOL [Suspect]
     Active Substance: CANRENOATE POTASSIUM
     Dosage: 1 DOSE UNIT, QD
     Dates: start: 20140512, end: 20140525
  7. TIKLID [Suspect]
     Active Substance: TICLOPIDINE HYDROCHLORIDE
     Indication: THROMBOCYTOPENIA
     Dosage: 2 DF, QD
     Route: 048
     Dates: start: 20140409, end: 20140429
  8. MOVICOL [Suspect]
     Active Substance: POLYETHYLENE GLYCOL 3350\POTASSIUM CHLORIDE\SODIUM BICARBONATE\SODIUM CHLORIDE
     Dosage: 2 SACHETS AS NEEDED
     Dates: start: 20140513, end: 20140519
  9. ACICLIN [Suspect]
     Active Substance: ACYCLOVIR
     Indication: GENITAL HERPES
     Dosage: 1200 MG, QD
     Route: 048
     Dates: start: 20140511, end: 20140518
  10. CALCIPARINA [Suspect]
     Active Substance: HEPARIN CALCIUM
     Indication: DEEP VEIN THROMBOSIS
     Dosage: 0.6 ML, QD
     Route: 058
     Dates: start: 20140513, end: 20140605
  11. BRONCOVALEAS [Suspect]
     Active Substance: ALBUTEROL
     Dosage: 7 DROPS, UNK
     Dates: start: 20140412, end: 20140516
  12. LASIX [Concomitant]
     Active Substance: FUROSEMIDE
     Dosage: STRENGTH: 20MG/ML, 1 DF
     Route: 030
  13. AIRCORT [Concomitant]
     Dosage: UNK
     Route: 055
  14. CLENIL (BECLOMETHASONE DIPROPIONATE) [Suspect]
     Active Substance: BECLOMETHASONE DIPROPIONATE
     Dosage: UNK, PRN
     Dates: start: 20140412, end: 20140516
  15. BRONCOVALEAS [Suspect]
     Active Substance: ALBUTEROL
     Dosage: 7 DF, UNK
     Dates: start: 20140412, end: 20140516
  16. ACETYLCYSTEINE. [Suspect]
     Active Substance: ACETYLCYSTEINE
     Dosage: UNK
     Dates: start: 20140514, end: 20140515
  17. BUDESONIDE. [Concomitant]
     Active Substance: BUDESONIDE
     Dosage: UNK
     Route: 055
  18. SEREVENT DISKUS [Concomitant]
     Active Substance: SALMETEROL XINAFOATE
     Indication: ASTHMA
     Dosage: 4 DF, UNK
     Route: 055
  19. TAVOR (FLUCONAZOLE) [Concomitant]
     Active Substance: FLUCONAZOLE
     Indication: INSOMNIA
     Dosage: 2.5 MG, UNK
     Route: 048
  20. TAZOCIN [Suspect]
     Active Substance: PIPERACILLIN SODIUM\TAZOBACTAM SODIUM
     Indication: PNEUMONIA BACTERIAL
     Dosage: (2G+0.250/4ML) 9 G, QD
     Route: 030
     Dates: start: 20140408, end: 20140428
  21. VANCOMYCIN [Suspect]
     Active Substance: VANCOMYCIN
     Indication: PNEUMONIA BACTERIAL
     Dosage: 2 G, QD
     Route: 042
     Dates: start: 20140517, end: 20140527
  22. XAGRID [Concomitant]
     Active Substance: ANAGRELIDE HYDROCHLORIDE
     Indication: MYELOPROLIFERATIVE NEOPLASM
     Dosage: 0.5 MG, UNK
     Route: 048
  23. LEVOFLOXACIN. [Suspect]
     Active Substance: LEVOFLOXACIN
     Indication: PNEUMONIA BACTERIAL
     Dosage: 1 DF, QD (POSOLOGY WAS VARIABLE IN FUNCTION OF THE VALUES OF CREATININE), STRENGTH: 5 MG/ML
     Route: 042
     Dates: start: 20140409, end: 20140429
  24. CETIRIZINE HYDROCHLORIDE. [Suspect]
     Active Substance: CETIRIZINE HYDROCHLORIDE
     Dosage: 10 MILLIGRAM, QD
     Route: 048
     Dates: start: 201405
  25. IOMERON [Suspect]
     Active Substance: IOMEPROL
     Indication: IMAGING PROCEDURE
     Dosage: 30 ML, UNK
     Route: 042
     Dates: start: 20140514
  26. CONTRAMAL [Suspect]
     Active Substance: TRAMADOL HYDROCHLORIDE
     Dosage: 20 GTT DROPS, QD, STRENGTH: 100 MG/ML
     Route: 048
     Dates: start: 20140409, end: 20140527
  27. ACETYLCYSTEINE. [Suspect]
     Active Substance: ACETYLCYSTEINE
     Dosage: UNK
     Dates: start: 20140514, end: 20140515
  28. DIETARY SUPPLEMENT (UNSPECIFIED) [Concomitant]
     Active Substance: DIETARY SUPPLEMENT
     Dosage: UNK, QD
     Route: 048

REACTIONS (5)
  - Generalised oedema [Recovering/Resolving]
  - Skin exfoliation [Recovering/Resolving]
  - Drug reaction with eosinophilia and systemic symptoms [Recovering/Resolving]
  - Bloody discharge [Recovering/Resolving]
  - Haematidrosis [Recovering/Resolving]

NARRATIVE: CASE EVENT DATE: 20140418
